FAERS Safety Report 5642142-9 (Version None)
Quarter: 2008Q1

REPORT INFORMATION
  Report Type: 
  Country: None (occurrence: None)
  Receive Date: 20080131
  Receipt Date: 20071212
  Transmission Date: 20080703
  Serious: No
  Sender: FDA-Public Use
  Company Number: 2006PV020710

PATIENT
  Age: 76 Year
  Sex: Male
  Weight: 93.4 kg

DRUGS (11)
  1. EXENATIDE        (EXENATIDE) PEN,DISPOSABLE [Suspect]
     Indication: TYPE 2 DIABETES MELLITUS
     Dosage: 5 UG, 2/D, SUBCUTANEOUS ; 10 UG, 2/D, SUBCUTANEOUS
     Route: 058
     Dates: start: 20060701, end: 20060801
  2. EXENATIDE        (EXENATIDE) PEN,DISPOSABLE [Suspect]
     Indication: TYPE 2 DIABETES MELLITUS
     Dosage: 5 UG, 2/D, SUBCUTANEOUS ; 10 UG, 2/D, SUBCUTANEOUS
     Route: 058
     Dates: start: 20060801, end: 20070101
  3. EXENATIDE           (EXENATIDE) PEN,DISPOSABLE [Suspect]
     Dosage: 5 UG, EACH MORNING, SUBCUTANEOUS ; 10 UG, EACH EVENING, SUBCUTANEOUS ; 5 UG, 2/D, SUBCUTANEOUS
     Route: 058
     Dates: start: 20070101, end: 20070201
  4. EXENATIDE           (EXENATIDE) PEN,DISPOSABLE [Suspect]
     Dosage: 5 UG, EACH MORNING, SUBCUTANEOUS ; 10 UG, EACH EVENING, SUBCUTANEOUS ; 5 UG, 2/D, SUBCUTANEOUS
     Route: 058
     Dates: start: 20070101, end: 20070201
  5. EXENATIDE           (EXENATIDE) PEN,DISPOSABLE [Suspect]
     Dosage: 5 UG, EACH MORNING, SUBCUTANEOUS ; 10 UG, EACH EVENING, SUBCUTANEOUS ; 5 UG, 2/D, SUBCUTANEOUS
     Route: 058
     Dates: start: 20000201
  6. LANTUS [Concomitant]
  7. DIABETA [Concomitant]
  8. COUMADIN [Concomitant]
  9. NEXIUM [Concomitant]
  10. BOTOX [Concomitant]
  11. ACTOS [Concomitant]

REACTIONS (6)
  - BLOOD GLUCOSE DECREASED [None]
  - BLOOD GLUCOSE INCREASED [None]
  - DECREASED APPETITE [None]
  - HYPERSOMNIA [None]
  - NAUSEA [None]
  - WEIGHT DECREASED [None]
